FAERS Safety Report 17006265 (Version 1)
Quarter: 2019Q4

REPORT INFORMATION
  Report Type: Spontaneous
  Country: US (occurrence: US)
  Receive Date: 20191106
  Receipt Date: 20191106
  Transmission Date: 20200122
  Serious: No
  Sender: FDA-Public Use
  Company Number: None

PATIENT
  Age: 29 Year
  Sex: Female
  Weight: 65.25 kg

DRUGS (3)
  1. XYREM [Concomitant]
     Active Substance: SODIUM OXYBATE
  2. DEXTROAMPHET SACCHARAT, AMPHET ASPARTATE, DEXTROAMPHET SULFATE AND AMPHET SULFAT [Suspect]
     Active Substance: AMPHETAMINE ASPARTATE\AMPHETAMINE SULFATE\DEXTROAMPHETAMINE SACCHARATE\DEXTROAMPHETAMINE SULFATE
     Indication: NARCOLEPSY
     Dates: start: 20161130, end: 20190808
  3. SUNOSI [Concomitant]
     Active Substance: SOLRIAMFETOL

REACTIONS (14)
  - Intentional product use issue [None]
  - Hypertension [None]
  - Nail disorder [None]
  - Weight increased [None]
  - Raynaud^s phenomenon [None]
  - Social avoidant behaviour [None]
  - Drug ineffective [None]
  - Stress [None]
  - Panic attack [None]
  - Poor peripheral circulation [None]
  - Mental disorder [None]
  - Depression [None]
  - Anxiety [None]
  - Nail ridging [None]

NARRATIVE: CASE EVENT DATE: 20180101
